FAERS Safety Report 6105502-8 (Version None)
Quarter: 2009Q1

REPORT INFORMATION
  Report Type: 
  Country: None (occurrence: None)
  Receive Date: 20090306
  Receipt Date: 20090227
  Transmission Date: 20090719
  Serious: Yes (Hospitalization, Disabling)
  Sender: FDA-Public Use
  Company Number: A0771653A

PATIENT
  Age: 36 Year
  Sex: Female
  Weight: 102.3 kg

DRUGS (9)
  1. AVANDIA [Suspect]
     Indication: DIABETES MELLITUS
     Dosage: 8MG PER DAY
     Route: 048
     Dates: start: 19990101, end: 20010101
  2. GLUCOPHAGE [Concomitant]
  3. METFORMIN [Concomitant]
  4. GLYBURIDE [Concomitant]
  5. GLUCOTROL [Concomitant]
  6. DEPO-PROVERA [Concomitant]
     Dates: start: 20010101
  7. LOVASTATIN [Concomitant]
     Dates: start: 20000101, end: 20020101
  8. ZOLOFT [Concomitant]
  9. AMITRIPTYLINE [Concomitant]

REACTIONS (2)
  - CARDIAC DISORDER [None]
  - MYOCARDIAL INFARCTION [None]
